FAERS Safety Report 8445872-9 (Version None)
Quarter: 2012Q2

REPORT INFORMATION
  Report Type: 
  Country: None (occurrence: None)
  Receive Date: 20120618
  Receipt Date: 20120614
  Transmission Date: 20120825
  Serious: Yes (Other)
  Sender: FDA-Public Use
  Company Number: US-TEVA-339767USA

PATIENT
  Sex: Male
  Weight: 68.1 kg

DRUGS (17)
  1. COLECALCIFEROL [Concomitant]
     Indication: MEDICAL DIET
     Route: 048
  2. DONEPEZIL HCL [Concomitant]
  3. FAMOTIDINE [Concomitant]
  4. SIMVASTATIN [Concomitant]
     Indication: HYPERCHOLESTEROLAEMIA
     Route: 048
  5. INSULIN [Concomitant]
  6. LISINOPRIL [Concomitant]
  7. LEVOTHYROXINE SODIUM [Concomitant]
     Indication: HYPOTHYROIDISM
  8. LEVETIRACETAM [Concomitant]
     Indication: CONVULSION
  9. METFORMIN HCL [Concomitant]
     Indication: DIABETES MELLITUS
  10. ASPIRIN [Concomitant]
     Indication: CARDIAC DISORDER
  11. CYAMOPSIS TETRAGONOLOBA GUM [Concomitant]
  12. AZILECT [Suspect]
     Indication: PARKINSON'S DISEASE
     Route: 048
     Dates: start: 20120507
  13. DOCUSATE SODIUM [Concomitant]
     Indication: DIARRHOEA
  14. MEMANTINE HYDROCHLORIDE [Concomitant]
  15. ISOSORBIDE DINITRATE [Concomitant]
  16. SINEMET [Concomitant]
     Indication: PARKINSON'S DISEASE
  17. METOPROLOL SUCCINATE [Concomitant]

REACTIONS (1)
  - DERMATITIS EXFOLIATIVE [None]
